FAERS Safety Report 20964266 (Version 3)
Quarter: 2022Q2

REPORT INFORMATION
  Report Type: Spontaneous
  Country: JP (occurrence: JP)
  Receive Date: 20220615
  Receipt Date: 20220627
  Transmission Date: 20220721
  Serious: Yes (Hospitalization, Other)
  Sender: FDA-Public Use
  Company Number: JP-MSD-M2022-16624

PATIENT
  Age: 79 Year
  Sex: Male

DRUGS (2)
  1. KEYTRUDA [Suspect]
     Active Substance: PEMBROLIZUMAB
     Indication: Renal cell carcinoma stage IV
     Dosage: 200 MILLIGRAM, Q3W
     Route: 041
     Dates: start: 20220407, end: 2022
  2. LENVATINIB MESYLATE [Suspect]
     Active Substance: LENVATINIB MESYLATE
     Indication: Renal cell carcinoma stage IV
     Dosage: 10 MILLIGRAM, QD
     Route: 048
     Dates: start: 20220407, end: 20220602

REACTIONS (7)
  - Adverse event [Unknown]
  - Interstitial lung disease [Unknown]
  - Aspartate aminotransferase increased [Recovered/Resolved]
  - Alanine aminotransferase increased [Recovered/Resolved]
  - Pyrexia [Recovered/Resolved]
  - Dyspnoea [Unknown]
  - Cough [Unknown]

NARRATIVE: CASE EVENT DATE: 20220101
